FAERS Safety Report 16999585 (Version 1)
Quarter: 2019Q4

REPORT INFORMATION
  Report Type: Spontaneous
  Country: IN (occurrence: IN)
  Receive Date: 20191106
  Receipt Date: 20191106
  Transmission Date: 20200122
  Serious: Yes (Hospitalization)
  Sender: FDA-Public Use
  Company Number: IN-EPIC PHARMA LLC-2019EPC00312

PATIENT
  Age: 16 Year
  Sex: Female

DRUGS (2)
  1. PHENYTOIN. [Suspect]
     Active Substance: PHENYTOIN
     Indication: GENERALISED TONIC-CLONIC SEIZURE
     Route: 065
  2. ANTI-TUBERCULOSIS DRUGS [Suspect]
     Active Substance: UNSPECIFIED INGREDIENT
     Indication: ABDOMINAL PAIN
     Route: 065

REACTIONS (2)
  - Posterior reversible encephalopathy syndrome [Recovering/Resolving]
  - Porphyria [Recovering/Resolving]
